FAERS Safety Report 10635988 (Version 3)
Quarter: 2015Q1

REPORT INFORMATION
  Report Type: Spontaneous
  Country: CA (occurrence: CA)
  Receive Date: 20141205
  Receipt Date: 20150227
  Transmission Date: 20150720
  Serious: Yes (Hospitalization, Other)
  Sender: FDA-Public Use
  Company Number: CA-ABBVIE-14P-028-1316624-00

PATIENT
  Age: 47 Year
  Sex: Female
  Weight: 39.04 kg

DRUGS (2)
  1. NORVASC [Concomitant]
     Active Substance: AMLODIPINE BESYLATE
     Indication: PRODUCT USED FOR UNKNOWN INDICATION
  2. MAVIK [Suspect]
     Active Substance: TRANDOLAPRIL
     Indication: HYPERTENSION
     Route: 048
     Dates: start: 20140925, end: 201410

REACTIONS (25)
  - Paraesthesia [Recovered/Resolved]
  - Malaise [Recovered/Resolved]
  - VIIth nerve paralysis [Recovered/Resolved]
  - Polyuria [Recovered/Resolved]
  - Hypoaesthesia [Recovered/Resolved]
  - Dyskinesia [Recovered/Resolved]
  - Drug hypersensitivity [Recovered/Resolved]
  - Dyspnoea [Recovered/Resolved]
  - Muscle spasms [Recovered/Resolved]
  - Nocturia [Recovered/Resolved]
  - Headache [Recovered/Resolved]
  - Chest discomfort [Recovered/Resolved]
  - Muscle tightness [Recovered/Resolved]
  - Rash [Recovered/Resolved]
  - Sinus tachycardia [Recovered/Resolved]
  - Swelling [Recovered/Resolved]
  - Facial paresis [Recovered/Resolved]
  - Muscle twitching [Recovered/Resolved]
  - Palpitations [Recovered/Resolved]
  - Anxiety [Recovered/Resolved]
  - Escherichia urinary tract infection [Recovered/Resolved]
  - Transient ischaemic attack [Recovered/Resolved]
  - Non-cardiac chest pain [Recovered/Resolved]
  - Dizziness [Recovered/Resolved]
  - Abdominal distension [Recovered/Resolved]

NARRATIVE: CASE EVENT DATE: 2014
